FAERS Safety Report 8537543-5 (Version None)
Quarter: 2012Q3

REPORT INFORMATION
  Report Type: 
  Country: None (occurrence: None)
  Receive Date: 20120725
  Receipt Date: 20120718
  Transmission Date: 20120928
  Serious: Yes (Other)
  Sender: FDA-Public Use
  Company Number: US-US-EMD SERONO, INC.-7112489

PATIENT
  Sex: Female
  Weight: 136 kg

DRUGS (8)
  1. REBIF [Suspect]
     Route: 058
  2. REBIF [Suspect]
     Route: 058
     Dates: start: 20120326
  3. REBIF [Suspect]
     Route: 058
     Dates: start: 20120701
  4. HYDROCHLOROTHIAZIDE [Concomitant]
     Indication: HYPERTENSION
     Route: 048
  5. MULTI-VITAMIN [Concomitant]
     Indication: PRODUCT USED FOR UNKNOWN INDICATION
     Route: 048
  6. ATENOLOL [Concomitant]
     Indication: HYPERTENSION
     Route: 048
  7. SYNTHROID [Concomitant]
     Indication: THYROID DISORDER
  8. REBIF [Suspect]
     Indication: MULTIPLE SCLEROSIS
     Route: 058
     Dates: start: 20101129, end: 20120326

REACTIONS (7)
  - THYROID DISORDER [None]
  - INJECTION SITE HAEMATOMA [None]
  - LIVER DISORDER [None]
  - MULTIPLE SCLEROSIS RELAPSE [None]
  - DIABETES MELLITUS [None]
  - GASTROOESOPHAGEAL REFLUX DISEASE [None]
  - WEIGHT INCREASED [None]
